FAERS Safety Report 16796713 (Version 1)
Quarter: 2019Q3

REPORT INFORMATION
  Report Type: Spontaneous
  Country: US (occurrence: US)
  Receive Date: 20190911
  Receipt Date: 20190911
  Transmission Date: 20191005
  Serious: No
  Sender: FDA-Public Use
  Company Number: US-TEVA-2019-US-1105160

PATIENT
  Sex: Female
  Weight: 60.84 kg

DRUGS (2)
  1. ESTRADIOL. [Suspect]
     Active Substance: ESTRADIOL
     Indication: HORMONE REPLACEMENT THERAPY
     Dosage: 1 MILLIGRAM DAILY; PRODUCT DISPENSED IN PHARMACY VIAL
     Route: 048
     Dates: start: 201908
  2. MEDROXYPROGESTERONE TEVA [Suspect]
     Active Substance: MEDROXYPROGESTERONE
     Indication: NIGHT SWEATS
     Dosage: 2.5 MILLIGRAM DAILY; PRODUCT DISPENSED IN PHARMACY VIAL
     Route: 048
     Dates: start: 201908

REACTIONS (2)
  - Drug ineffective [Unknown]
  - Product substitution issue [Unknown]
